FAERS Safety Report 19590081 (Version 1)
Quarter: 2021Q3

REPORT INFORMATION
  Report Type: Spontaneous
  Country: US (occurrence: US)
  Receive Date: 20210721
  Receipt Date: 20210721
  Transmission Date: 20211014
  Serious: Yes (Other)
  Sender: FDA-Public Use
  Company Number: US-AMGEN-USASP2021109834

PATIENT
  Sex: Female

DRUGS (2)
  1. OTEZLA [Suspect]
     Active Substance: APREMILAST
     Indication: PRODUCT USED FOR UNKNOWN INDICATION
     Dosage: UNK
     Route: 065
  2. HUMIRA [Suspect]
     Active Substance: ADALIMUMAB
     Indication: PSORIASIS
     Dosage: UNK (CITRATE FREE)
     Route: 058

REACTIONS (6)
  - Psoriatic arthropathy [Unknown]
  - Nausea [Unknown]
  - Rash pruritic [Unknown]
  - Rotator cuff syndrome [Unknown]
  - Colon cancer [Recovering/Resolving]
  - Diarrhoea [Unknown]
